FAERS Safety Report 6480855-X (Version None)
Quarter: 2009Q4

REPORT INFORMATION
  Report Type: 
  Country: None (occurrence: None)
  Receive Date: 20091203
  Receipt Date: 20091124
  Transmission Date: 20100525
  Serious: Yes (Other)
  Sender: FDA-Public Use
  Company Number: 8055288

PATIENT
  Age: 41 Year
  Sex: Female

DRUGS (1)
  1. CIMZIA [Suspect]
     Dosage: 400 MG 1/2W SC
     Route: 058
     Dates: start: 20090703

REACTIONS (2)
  - ANASTOMOTIC STENOSIS [None]
  - RECTAL ULCER [None]
